FAERS Safety Report 8915463 (Version 2)
Quarter: 2012Q4

REPORT INFORMATION
  Report Type: 
  Country: US (occurrence: US)
  Receive Date: 20121119
  Receipt Date: 20121129
  Transmission Date: 20130627
  Serious: No
  Sender: FDA-Public Use
  Company Number: US-PFIZER INC-2012285602

PATIENT
  Age: 54 Year
  Sex: Female

DRUGS (1)
  1. XALKORI [Suspect]
     Indication: LUNG CANCER
     Dosage: 250 mg, 2x/day

REACTIONS (5)
  - Diarrhoea [Unknown]
  - Skin sensitisation [Unknown]
  - Night blindness [Unknown]
  - Altered visual depth perception [Unknown]
  - Diplopia [Unknown]
